FAERS Safety Report 5415535-2 (Version None)
Quarter: 2007Q3

REPORT INFORMATION
  Report Type: 
  Country: None (occurrence: None)
  Receive Date: 20070815
  Receipt Date: 20070810
  Transmission Date: 20080115
  Serious: Yes (Hospitalization)
  Sender: FDA-Public Use
  Company Number: A0669486A

PATIENT
  Age: 53 Year
  Sex: Male

DRUGS (7)
  1. COREG [Suspect]
     Indication: HYPERTENSION
     Route: 048
     Dates: end: 20070701
  2. COREG CR [Suspect]
     Indication: HYPERTENSION
     Dosage: 80MG PER DAY
     Route: 048
     Dates: start: 20070701
  3. ASPIRIN [Concomitant]
  4. LEVEMIR [Concomitant]
  5. NOVOLOG [Concomitant]
  6. NEURONTIN [Concomitant]
  7. LIPITOR [Concomitant]

REACTIONS (6)
  - CATARACT [None]
  - CEREBROVASCULAR ACCIDENT [None]
  - DIZZINESS [None]
  - LEG AMPUTATION [None]
  - MYOCARDIAL INFARCTION [None]
  - TOE AMPUTATION [None]
